FAERS Safety Report 9396542 (Version 1)
Quarter: 2013Q3

REPORT INFORMATION
  Report Type: Spontaneous
  Country: US (occurrence: US)
  Receive Date: 20130711
  Receipt Date: 20130711
  Transmission Date: 20140515
  Serious: No
  Sender: FDA-Public Use
  Company Number: US-BIOGENIDEC-2013BI062230

PATIENT
  Age: 36 Year
  Sex: Female

DRUGS (2)
  1. TYSABRI [Suspect]
     Indication: CROHN^S DISEASE
     Route: 042
     Dates: start: 20110909, end: 20130326
  2. METHOTREXATE [Concomitant]
     Indication: CROHN^S DISEASE

REACTIONS (3)
  - Myalgia [Unknown]
  - Crohn^s disease [Unknown]
  - Arthralgia [Unknown]
